FAERS Safety Report 18859554 (Version 1)
Quarter: 2021Q1

REPORT INFORMATION
  Report Type: Spontaneous
  Country: US (occurrence: US)
  Receive Date: 20210208
  Receipt Date: 20210208
  Transmission Date: 20210420
  Serious: Yes (Other)
  Sender: FDA-Public Use
  Company Number: US-GLAXOSMITHKLINE-US2021025004

PATIENT
  Sex: Male

DRUGS (1)
  1. TRELEGY ELLIPTA [Suspect]
     Active Substance: FLUTICASONE FUROATE\UMECLIDINIUM BROMIDE\VILANTEROL TRIFENATATE
     Indication: CHRONIC OBSTRUCTIVE PULMONARY DISEASE
     Dosage: UNKNOWN
     Dates: start: 2019

REACTIONS (7)
  - Atrial fibrillation [Unknown]
  - Renal cancer [Unknown]
  - Cardiac pacemaker insertion [Unknown]
  - Tachycardia [Unknown]
  - Product dose omission issue [Unknown]
  - Cough [Unknown]
  - Bladder cancer [Unknown]
